FAERS Safety Report 24379034 (Version 1)
Quarter: 2024Q3

REPORT INFORMATION
  Report Type: Spontaneous
  Country: MX (occurrence: None)
  Receive Date: 20240930
  Receipt Date: 20240930
  Transmission Date: 20241016
  Serious: Yes (Other)
  Sender: UNICHEM
  Company Number: MX-Unichem Pharmaceuticals (USA) Inc-UCM202409-001196

PATIENT
  Age: 72 Year
  Sex: Male

DRUGS (1)
  1. LAMOTRIGINE [Suspect]
     Active Substance: LAMOTRIGINE
     Indication: Epilepsy
     Dosage: UNKNOWN

REACTIONS (6)
  - Jaundice [Recovered/Resolved]
  - Eosinophilic colitis [Recovered/Resolved]
  - Diarrhoea haemorrhagic [Recovered/Resolved]
  - Cholestasis [Recovered/Resolved]
  - Cytomegalovirus infection reactivation [Recovered/Resolved]
  - Drug reaction with eosinophilia and systemic symptoms [Recovered/Resolved]
